FAERS Safety Report 6126827-6 (Version None)
Quarter: 2009Q1

REPORT INFORMATION
  Report Type: 
  Country: None (occurrence: None)
  Receive Date: 20090320
  Receipt Date: 20090310
  Transmission Date: 20090719
  Serious: Yes (Other)
  Sender: FDA-Public Use
  Company Number: ES-ELI_LILLY_AND_COMPANY-ES200902007633

PATIENT
  Age: 55 Year
  Sex: Male

DRUGS (5)
  1. BYETTA [Suspect]
     Indication: DIABETES MELLITUS
     Dosage: 5 UG, 2/D
     Route: 058
     Dates: start: 20090101, end: 20090101
  2. BYETTA [Suspect]
     Dosage: 10 UG, 2/D, (MORNING AND NIGHT)
     Route: 065
     Dates: start: 20090201
  3. ACTOS [Concomitant]
     Dosage: UNK, UNKNOWN
     Route: 065
     Dates: start: 20070101
  4. METFORMIN HCL [Concomitant]
     Dosage: UNK, UNKNOWN
     Route: 065
     Dates: start: 20070101
  5. INSULIN [Concomitant]
     Dosage: UNK, 4/D
     Route: 065
     Dates: start: 20070101, end: 20090101

REACTIONS (2)
  - BLOOD GLUCOSE INCREASED [None]
  - WEIGHT DECREASED [None]
